FAERS Safety Report 9830963 (Version 2)
Quarter: 2014Q1

REPORT INFORMATION
  Report Type: Spontaneous
  Country: US (occurrence: US)
  Receive Date: 20140120
  Receipt Date: 20140120
  Transmission Date: 20141002
  Serious: Yes (Other)
  Sender: FDA-Public Use
  Company Number: PHEH2013US026345

PATIENT
  Age: 58 Year
  Sex: Female
  Weight: 102.9 kg

DRUGS (10)
  1. TEGRETOL [Suspect]
     Indication: TRIGEMINAL NEURALGIA
     Dosage: 200 MG, PRN
     Route: 048
     Dates: start: 201309
  2. TEGRETOL [Suspect]
     Dosage: 200 MG, BID
     Route: 048
  3. AMPYRA [Suspect]
     Dosage: 10 MG, QD
     Route: 048
     Dates: start: 20120216
  4. REBIF [Suspect]
     Dosage: 22 UG, THREE TIMES
     Route: 058
  5. NUVIGIL [Suspect]
     Dosage: 250 MG, ONCE DAILY
     Route: 048
  6. ATENOLOL [Concomitant]
     Dosage: 50 MG, ONCE DAILY
     Route: 048
  7. BENAZEPRIL [Concomitant]
     Dosage: 40 MG, ONCE DAILY
     Route: 048
  8. GABAPENTIN [Concomitant]
     Dosage: 800 MG, TID
     Route: 048
  9. NIFEDIPINE [Concomitant]
     Dosage: 90 MG, ONCE DAILY
     Route: 048
  10. CYMBALTA [Concomitant]
     Dosage: 60 MG, ONCE DAILY
     Route: 048

REACTIONS (3)
  - Facial pain [Recovering/Resolving]
  - Speech disorder [Recovering/Resolving]
  - Trigeminal neuralgia [Recovering/Resolving]
